FAERS Safety Report 17712074 (Version 1)
Quarter: 2020Q2

REPORT INFORMATION
  Report Type: Spontaneous
  Country: US (occurrence: US)
  Receive Date: 20200427
  Receipt Date: 20200427
  Transmission Date: 20200714
  Serious: No
  Sender: FDA-Public Use
  Company Number: US-FDC LIMITED-2019RIS00605

PATIENT
  Sex: Female

DRUGS (2)
  1. LATANOPROST (SANDOZ) [Suspect]
     Active Substance: LATANOPROST
     Route: 047
  2. LATANOPROST. [Suspect]
     Active Substance: LATANOPROST
     Route: 047

REACTIONS (1)
  - Drug ineffective [Recovered/Resolved]
